FAERS Safety Report 12613251 (Version 2)
Quarter: 2016Q3

REPORT INFORMATION
  Report Type: Report from Study
  Country: US (occurrence: US)
  Receive Date: 20160802
  Receipt Date: 20160805
  Transmission Date: 20161109
  Serious: Yes (Hospitalization, Other)
  Sender: FDA-Public Use
  Company Number: US-GILEAD-2016-0226096

PATIENT
  Age: 44 Year
  Sex: Female

DRUGS (7)
  1. AMBRISENTAN [Suspect]
     Active Substance: AMBRISENTAN
     Indication: PULMONARY HYPERTENSION
     Dosage: 10 MG, QD
     Route: 065
     Dates: start: 20150728
  2. AMBRISENTAN [Suspect]
     Active Substance: AMBRISENTAN
     Indication: SICKLE CELL ANAEMIA
  3. HYDROXYUREA. [Concomitant]
     Active Substance: HYDROXYUREA
  4. FOLIC ACID. [Concomitant]
     Active Substance: FOLIC ACID
  5. SPIRIVA COMBI [Concomitant]
     Active Substance: TIOTROPIUM BROMIDE
  6. GABAPENTIN. [Concomitant]
     Active Substance: GABAPENTIN
  7. FUROSEMIDE                         /00032602/ [Concomitant]
     Active Substance: FUROSEMIDE

REACTIONS (3)
  - Hypoxia [Recovered/Resolved]
  - Sickle cell anaemia with crisis [Recovered/Resolved]
  - Unresponsive to stimuli [Recovered/Resolved]

NARRATIVE: CASE EVENT DATE: 20160713
